FAERS Safety Report 24349817 (Version 1)
Quarter: 2024Q3

REPORT INFORMATION
  Report Type: Report from Study
  Country: CO (occurrence: CO)
  Receive Date: 20240923
  Receipt Date: 20240923
  Transmission Date: 20241016
  Serious: Yes (Hospitalization, Other)
  Sender: MYLAN
  Company Number: CO-MYLANLABS-2024M1085162

PATIENT
  Age: 9 Year
  Sex: Male
  Weight: 15 kg

DRUGS (10)
  1. CYSTAGON [Suspect]
     Active Substance: CYSTEAMINE BITARTRATE
     Indication: Cystinosis
     Dosage: 150 MILLIGRAM, Q4H (EVERY 4 HOURS)
     Route: 048
     Dates: start: 20180917
  2. CYSTEAMINE HYDROCHLORIDE [Suspect]
     Active Substance: CYSTEAMINE HYDROCHLORIDE
     Indication: Cystinosis
     Dosage: 2 GTT DROPS, Q6H (EVERY 6 HOURS (1 DROP IN BOTH EYES)
     Route: 047
     Dates: start: 20181026
  3. FOLIC ACID [Concomitant]
     Active Substance: FOLIC ACID
     Indication: Nephropathy
     Dosage: 1 MILLIGRAM, QD (PER DAY)
     Route: 065
  4. VITAMIN B COMPLEX [Concomitant]
     Active Substance: CYANOCOBALAMIN\DEXPANTHENOL\NIACINAMIDE\PYRIDOXINE HYDROCHLORIDE\RIBOFLAVIN 5^-PHOSPHATE SODIUM\THIA
     Indication: Vitamin supplementation
     Dosage: 1 DOSAGE FORM, QD (PER DAY)
     Route: 065
  5. CALCITRIOL [Concomitant]
     Active Substance: CALCITRIOL
     Indication: Vitamin supplementation
     Dosage: 0.25 MILLIGRAM, QD (PER DAY)
     Route: 065
  6. POTASSIUM CITRATE [Concomitant]
     Active Substance: POTASSIUM CITRATE
     Indication: Electrolyte substitution therapy
     Dosage: 1.080 MILLIGRAM, QD (PER DAY)
     Route: 065
  7. CALCIUM CARBONATE [Concomitant]
     Active Substance: CALCIUM CARBONATE
     Indication: Electrolyte substitution therapy
     Dosage: 4.5 CC (CUBIC CENTIMETER), QD (PER DAY)
     Route: 065
  8. ESOMEPRAZOLE [Concomitant]
     Active Substance: ESOMEPRAZOLE
     Dosage: 10 MILLIGRAM, BID (EVERY 12 HOURS)
     Route: 065
  9. SEVELAMER [Concomitant]
     Active Substance: SEVELAMER
     Indication: Nephropathy
     Dosage: 400 MILLIGRAM, QD (DAILY)
     Route: 065
  10. POLYETHYLENE GLYCOL [Concomitant]
     Active Substance: POLYETHYLENE GLYCOL
     Indication: Abdominal discomfort
     Dosage: 1 PACKET AT NIGHT, HS
     Route: 065

REACTIONS (5)
  - Dysuria [Recovered/Resolved]
  - Decreased appetite [Recovered/Resolved]
  - Renal impairment [Unknown]
  - Hyponatraemia [Unknown]
  - Off label use [Unknown]

NARRATIVE: CASE EVENT DATE: 20180917
